FAERS Safety Report 7596185-9 (Version None)
Quarter: 2011Q3

REPORT INFORMATION
  Report Type: 
  Country: None (occurrence: None)
  Receive Date: 20110707
  Receipt Date: 20110627
  Transmission Date: 20111222
  Serious: Yes (Hospitalization, Other)
  Sender: FDA-Public Use
  Company Number: US-ALEXION-A201100364

PATIENT
  Sex: Female

DRUGS (4)
  1. IRINOTECAN HYDROCHLORIDE [Concomitant]
     Dosage: UNK
     Dates: start: 20110324
  2. SOLIRIS [Suspect]
     Indication: PAROXYSMAL NOCTURNAL HAEMOGLOBINURIA
     Dosage: UNK
     Route: 042
  3. CETUXIMAB [Concomitant]
  4. IRINOTECAN HYDROCHLORIDE [Concomitant]
     Dosage: UNK
     Dates: start: 20100101, end: 20100101

REACTIONS (13)
  - DIARRHOEA [None]
  - PRURITUS GENERALISED [None]
  - DECREASED APPETITE [None]
  - ABDOMINAL PAIN [None]
  - NAUSEA [None]
  - VOMITING [None]
  - NERVOUSNESS [None]
  - BLOOD BILIRUBIN INCREASED [None]
  - DUODENAL OBSTRUCTION [None]
  - WEIGHT DECREASED [None]
  - PANCYTOPENIA [None]
  - NEOPLASM MALIGNANT [None]
  - NEUROPATHY PERIPHERAL [None]
